FAERS Safety Report 6978735-6 (Version None)
Quarter: 2010Q3

REPORT INFORMATION
  Report Type: 
  Country: None (occurrence: None)
  Receive Date: 20100913
  Receipt Date: 20100903
  Transmission Date: 20110219
  Serious: Yes (Hospitalization)
  Sender: FDA-Public Use
  Company Number: B0674139A

PATIENT
  Sex: Female

DRUGS (3)
  1. ZINACEF [Suspect]
     Indication: PERITONITIS
     Dosage: 3MG PER DAY
     Route: 065
     Dates: start: 20100805, end: 20100806
  2. EXTRANEAL [Suspect]
     Indication: RENAL FAILURE
     Dosage: 12ML PER DAY
     Route: 065
     Dates: start: 20100805, end: 20100812
  3. UNKNOWN DRUG [Concomitant]

REACTIONS (1)
  - DERMATITIS EXFOLIATIVE [None]
